FAERS Safety Report 18623632 (Version 1)
Quarter: 2020Q4

REPORT INFORMATION
  Report Type: Other
  Country: US (occurrence: US)
  Receive Date: 20201216
  Receipt Date: 20201216
  Transmission Date: 20210114
  Serious: Yes (Death, Other)
  Sender: FDA-Public Use
  Company Number: US-ROCHE-2731306

PATIENT
  Age: 65 Year
  Sex: Male

DRUGS (5)
  1. CARBAMAZEPINE. [Concomitant]
     Active Substance: CARBAMAZEPINE
  2. OCREVUS [Suspect]
     Active Substance: OCRELIZUMAB
     Indication: RELAPSING-REMITTING MULTIPLE SCLEROSIS
  3. GABAPENTIN. [Concomitant]
     Active Substance: GABAPENTIN
  4. OXYBUTYNIN. [Concomitant]
     Active Substance: OXYBUTYNIN CHLORIDE
  5. OCREVUS [Suspect]
     Active Substance: OCRELIZUMAB
     Indication: MULTIPLE SCLEROSIS
     Dosage: PRESCRIBED WITH INFUSE 300 MG ONCE ON DAY 1 AND DAY 15 THEN INFUSE 600 MG ONCE EVERY 24 WEEKS?DATE O
     Route: 042
     Dates: start: 20200117, end: 20200131

REACTIONS (3)
  - Death [Fatal]
  - Brain neoplasm malignant [Not Recovered/Not Resolved]
  - Lung neoplasm malignant [Not Recovered/Not Resolved]

NARRATIVE: CASE EVENT DATE: 20200618
